FAERS Safety Report 25332525 (Version 1)
Quarter: 2025Q2

REPORT INFORMATION
  Report Type: Report from Study
  Country: FR (occurrence: FR)
  Receive Date: 20250519
  Receipt Date: 20250519
  Transmission Date: 20250716
  Serious: Yes (Hospitalization, Other)
  Sender: PFIZER
  Company Number: FR-009507513-2403FRA005399

PATIENT
  Age: 66 Year
  Sex: Male

DRUGS (5)
  1. METHOTREXATE SODIUM [Suspect]
     Active Substance: METHOTREXATE SODIUM
  2. KEYTRUDA [Suspect]
     Active Substance: PEMBROLIZUMAB
     Indication: Head and neck cancer metastatic
     Dosage: 200 MG, EVERY 3 WEEKS (9.4 MG REGIMEN DOSE: 1200 MG)
     Dates: start: 20231120, end: 20240313
  3. KEYTRUDA [Suspect]
     Active Substance: PEMBROLIZUMAB
     Dosage: 200 MG, EVERY 3 WEEKS (9.4 MG REGIMEN DOSE: 1200 MG)
     Dates: start: 20231120, end: 20240313
  4. KEYTRUDA [Suspect]
     Active Substance: PEMBROLIZUMAB
     Dosage: 200 MG, EVERY 3 WEEKS (9.4 MG REGIMEN DOSE: 1200 MG)
     Dates: start: 20231120, end: 20240313
  5. CISPLATIN [Suspect]
     Active Substance: CISPLATIN
     Indication: Head and neck cancer metastatic

REACTIONS (7)
  - Malignant neoplasm progression [Not Recovered/Not Resolved]
  - Hepatic cytolysis [Recovering/Resolving]
  - General physical condition abnormal [Recovered/Resolved]
  - Constipation [Recovered/Resolved]
  - Asthenia [Recovered/Resolved]
  - Liver function test abnormal [Recovering/Resolving]
  - Constipation [Recovered/Resolved]

NARRATIVE: CASE EVENT DATE: 20231214
